FAERS Safety Report 10181568 (Version 2)
Quarter: 2014Q2

REPORT INFORMATION
  Report Type: Spontaneous
  Country: US (occurrence: US)
  Receive Date: 20140519
  Receipt Date: 20140527
  Transmission Date: 20141212
  Serious: No
  Sender: FDA-Public Use
  Company Number: US-PFIZER INC-2014133130

PATIENT
  Age: 84 Year
  Sex: Female
  Weight: 58.96 kg

DRUGS (3)
  1. ADVIL [Suspect]
     Indication: PAIN IN EXTREMITY
     Dosage: UNK
     Dates: start: 201402, end: 2014
  2. ADVIL [Suspect]
     Indication: ARTHRALGIA
  3. ADVIL [Suspect]
     Indication: BACK PAIN

REACTIONS (1)
  - Drug ineffective [Unknown]
